FAERS Safety Report 14910671 (Version 3)
Quarter: 2018Q3

REPORT INFORMATION
  Report Type: Not Available
  Country: US (occurrence: US)
  Receive Date: 20180517
  Receipt Date: 20180712
  Transmission Date: 20181010
  Serious: No
  Sender: FDA-Public Use
  Company Number: US-NEUROCRINE BIOSCIENCES INC.-2018NBI01379

PATIENT
  Sex: Male

DRUGS (15)
  1. INGREZZA [Suspect]
     Active Substance: VALBENAZINE
     Route: 048
     Dates: start: 201803, end: 20180426
  2. INGREZZA [Suspect]
     Active Substance: VALBENAZINE
     Indication: DYSKINESIA
     Route: 048
     Dates: start: 20171026, end: 20171102
  3. CLOPIDOGREL [Concomitant]
     Active Substance: CLOPIDOGREL BISULFATE
     Indication: ANTIPLATELET THERAPY
  4. LISINOPRIL. [Concomitant]
     Active Substance: LISINOPRIL
     Dosage: 10?12.5 (UNITS UNKNOWN), HALF TABLET PER DAY
  5. GABAPENTIN. [Concomitant]
     Active Substance: GABAPENTIN
     Dosage: AT NIGHT
  6. METOPROLOL. [Concomitant]
     Active Substance: METOPROLOL
  7. ALDACTONE [Concomitant]
     Active Substance: SPIRONOLACTONE
     Dosage: HALF A TABLET TAKEN ONCE EVERY OTHER DAY
  8. GEMFIBROZIL. [Concomitant]
     Active Substance: GEMFIBROZIL
  9. MEGESTROL [Concomitant]
     Active Substance: MEGESTROL
  10. INGREZZA [Suspect]
     Active Substance: VALBENAZINE
     Route: 048
     Dates: start: 20171103, end: 201803
  11. ATORVASTATIN [Concomitant]
     Active Substance: ATORVASTATIN
  12. DEXILANT [Concomitant]
     Active Substance: DEXLANSOPRAZOLE
     Indication: DYSPEPSIA
  13. CASODEX [Concomitant]
     Active Substance: BICALUTAMIDE
  14. REQUIP [Concomitant]
     Active Substance: ROPINIROLE HYDROCHLORIDE
     Dosage: 0.5 (UNITS UNSPECIFIED)
  15. DITROPAN [Concomitant]
     Active Substance: OXYBUTYNIN CHLORIDE

REACTIONS (4)
  - Somnolence [Recovered/Resolved]
  - Balance disorder [Recovered/Resolved]
  - Impaired driving ability [Recovered/Resolved]
  - Dizziness [Recovered/Resolved]
